FAERS Safety Report 7684606-2 (Version None)
Quarter: 2011Q3

REPORT INFORMATION
  Report Type: 
  Country: None (occurrence: None)
  Receive Date: 20110816
  Receipt Date: 20110810
  Transmission Date: 20111222
  Serious: No
  Sender: FDA-Public Use
  Company Number: US-BIOGENIDEC-2011BI030520

PATIENT
  Age: 54 Year
  Sex: Female

DRUGS (2)
  1. TYSABRI [Suspect]
     Indication: MULTIPLE SCLEROSIS
     Route: 042
     Dates: start: 20090901
  2. WATER PILL (NOS) [Concomitant]
     Indication: OEDEMA PERIPHERAL

REACTIONS (8)
  - DECREASED APPETITE [None]
  - GAIT DISTURBANCE [None]
  - BACK PAIN [None]
  - WEIGHT DECREASED [None]
  - CONSTIPATION [None]
  - VISUAL FIELD DEFECT [None]
  - HEADACHE [None]
  - SINUSITIS [None]
